FAERS Safety Report 15901993 (Version 1)
Quarter: 2019Q1

REPORT INFORMATION
  Report Type: Spontaneous
  Country: IT (occurrence: IT)
  Receive Date: 20190201
  Receipt Date: 20190201
  Transmission Date: 20190417
  Serious: Yes (Death)
  Sender: FDA-Public Use
  Company Number: PHHY2019IT022152

PATIENT

DRUGS (1)
  1. REVOLADE [Suspect]
     Active Substance: ELTROMBOPAG
     Indication: TRANSPLANT FAILURE
     Dosage: 50 MG, QD
     Route: 048

REACTIONS (3)
  - Acute graft versus host disease [Fatal]
  - Product use in unapproved indication [Unknown]
  - Drug ineffective [Unknown]
